FAERS Safety Report 10653188 (Version 4)
Quarter: 2015Q1

REPORT INFORMATION
  Report Type: Report from Study
  Country: BE (occurrence: BE)
  Receive Date: 20141215
  Receipt Date: 20150303
  Transmission Date: 20150720
  Serious: Yes (Hospitalization)
  Sender: FDA-Public Use
  Company Number: BE-GLAXOSMITHKLINE-B1027206A

PATIENT
  Sex: Female
  Weight: 70.3 kg

DRUGS (1)
  1. PAZOPANIB [Suspect]
     Active Substance: PAZOPANIB
     Indication: RENAL CELL CARCINOMA
     Dosage: 800 MG, QD
     Dates: start: 20140514

REACTIONS (3)
  - Ulcer [Not Recovered/Not Resolved]
  - Ulcer [Recovered/Resolved with Sequelae]
  - Humerus fracture [Recovered/Resolved]

NARRATIVE: CASE EVENT DATE: 20140806
